FAERS Safety Report 23628633 (Version 1)
Quarter: 2024Q1

REPORT INFORMATION
  Report Type: Report from Study
  Country: US (occurrence: None)
  Receive Date: 20240313
  Receipt Date: 20240313
  Transmission Date: 20240409
  Serious: Yes (Hospitalization, Other)
  Sender: FDA-Public Use
  Company Number: 2024A058538

PATIENT
  Weight: 79.4 kg

DRUGS (1)
  1. TEZSPIRE [Suspect]
     Active Substance: TEZEPELUMAB-EKKO

REACTIONS (3)
  - Pneumonia staphylococcal [Unknown]
  - Joint swelling [Unknown]
  - Dyspnoea paroxysmal nocturnal [Unknown]
